FAERS Safety Report 23597466 (Version 2)
Quarter: 2024Q1

REPORT INFORMATION
  Report Type: Report from Study
  Country: FR (occurrence: None)
  Receive Date: 20240305
  Receipt Date: 20240307
  Transmission Date: 20240410
  Serious: Yes (Death)
  Sender: FDA-Public Use
  Company Number: 2024A049675

PATIENT
  Sex: Female
  Weight: 92 kg

DRUGS (1)
  1. IMFINZI [Suspect]
     Active Substance: DURVALUMAB
     Indication: HER2 positive biliary tract cancer
     Route: 042
     Dates: start: 20230201

REACTIONS (2)
  - Death [Fatal]
  - Adverse event [Unknown]
